FAERS Safety Report 8184498-1 (Version None)
Quarter: 2012Q1

REPORT INFORMATION
  Report Type: 
  Country: None (occurrence: None)
  Receive Date: 20120305
  Receipt Date: 20120301
  Transmission Date: 20120608
  Serious: Yes (Other)
  Sender: FDA-Public Use
  Company Number: ES-ABBOTT-12P-144-0903515-00

PATIENT
  Age: 29 Year
  Sex: Male
  Weight: 68 kg

DRUGS (2)
  1. AZATHIOPRINE [Concomitant]
     Indication: CROHN'S DISEASE
     Route: 048
     Dates: start: 20080101
  2. HUMIRA [Suspect]
     Indication: CROHN'S DISEASE
     Route: 058
     Dates: start: 20111001, end: 20111201

REACTIONS (5)
  - TRANSAMINASES INCREASED [None]
  - INFECTIOUS MONONUCLEOSIS [None]
  - CHOLURIA [None]
  - CYTOMEGALOVIRUS INFECTION [None]
  - ASTHENIA [None]
